FAERS Safety Report 8799460 (Version 3)
Quarter: 2012Q4

REPORT INFORMATION
  Report Type: 
  Country: US (occurrence: US)
  Receive Date: 20120919
  Receipt Date: 20120927
  Transmission Date: 20130627
  Serious: Yes (Hospitalization)
  Sender: FDA-Public Use
  Company Number: PHEH2012US018115

PATIENT
  Sex: Male

DRUGS (1)
  1. GILENYA [Suspect]
     Indication: MULTIPLE SCLEROSIS
     Dosage: 0.5 mg, QD
     Route: 048

REACTIONS (5)
  - Chondrosarcoma [Unknown]
  - Metastases to lung [Unknown]
  - Pain in extremity [Unknown]
  - Oedema peripheral [Unknown]
  - Infection [Unknown]
